FAERS Safety Report 8951433 (Version 1)
Quarter: 2012Q4

REPORT INFORMATION
  Report Type: Spontaneous
  Country: IT (occurrence: None)
  Receive Date: 20121129
  Receipt Date: 20121129
  Transmission Date: 20130627
  Serious: Yes (Other)
  Sender: FDA-Public Use
  Company Number: 2012P1065383

PATIENT
  Age: 56 Year
  Sex: Male

DRUGS (3)
  1. ISONIAZID [Suspect]
     Indication: TUBERCULOUS PLEURISY
  2. ETHAMBUTOL [Concomitant]
  3. RIFAMPICIN [Concomitant]

REACTIONS (1)
  - Delirium [None]
